FAERS Safety Report 4430576-X (Version None)
Quarter: 2004Q3

REPORT INFORMATION
  Report Type: 
  Country: None (occurrence: None)
  Receive Date: 20040818
  Receipt Date: 20040804
  Transmission Date: 20050211
  Serious: Yes (Hospitalization)
  Sender: FDA-Public Use
  Company Number: JP_040804106

PATIENT
  Age: 72 Year
  Sex: Male

DRUGS (17)
  1. PERMAX [Suspect]
     Indication: PARKINSON'S DISEASE
     Dates: end: 20040714
  2. MADOPAR [Concomitant]
  3. GASMOTIN (MOSAPRIDE CITRATE) [Concomitant]
  4. BIOFERMIN [Concomitant]
  5. EURODIN (ESTAZOLAM) [Concomitant]
  6. ZOLPIDEM TARTRATE [Concomitant]
  7. DESYREL [Concomitant]
  8. FAMOTIDINE [Concomitant]
  9. PROMAC (POLAPREZINIC) [Concomitant]
  10. CABERGOLINE [Concomitant]
  11. UBRETID (DISTIGMINE BROMIDE) [Concomitant]
  12. HARNAL (TAMSULOSIN HYDROCHLORIDE) [Concomitant]
  13. SEROQUEL [Concomitant]
  14. DOGMATYL (SULPIRIDE) [Concomitant]
  15. URSO (URSODEXYCHOLIC ACID) [Concomitant]
  16. LEVOFLOXACIN [Concomitant]
  17. LENDORM [Concomitant]

REACTIONS (2)
  - LIVER DISORDER [None]
  - PERICARDIAL EFFUSION [None]
